FAERS Safety Report 25926096 (Version 2)
Quarter: 2025Q4

REPORT INFORMATION
  Report Type: Spontaneous
  Country: EU (occurrence: EU)
  Receive Date: 20251015
  Receipt Date: 20251023
  Transmission Date: 20260117
  Serious: Yes (Other)
  Sender: BRISTOL-MYERS SQUIBB COMPANY
  Company Number: EU-ROCHE-10000403349

PATIENT
  Age: 14 Year
  Sex: Female

DRUGS (9)
  1. ABATACEPT [Suspect]
     Active Substance: ABATACEPT
     Indication: Blau syndrome
  2. MYCOPHENOLATE MOFETIL [Suspect]
     Active Substance: MYCOPHENOLATE MOFETIL
     Indication: Blau syndrome
  3. TOCILIZUMAB [Suspect]
     Active Substance: TOCILIZUMAB
     Indication: Blau syndrome
  4. INFLIXIMAB [Suspect]
     Active Substance: INFLIXIMAB
     Indication: Blau syndrome
  5. ANAKINRA [Suspect]
     Active Substance: ANAKINRA
     Indication: Blau syndrome
  6. METHOTREXATE [Suspect]
     Active Substance: METHOTREXATE
     Indication: Blau syndrome
  7. ADALIMUMAB [Suspect]
     Active Substance: ADALIMUMAB
     Indication: Blau syndrome
  8. BARICITINIB [Suspect]
     Active Substance: BARICITINIB
     Indication: Blau syndrome
  9. PREDNISONE [Suspect]
     Active Substance: PREDNISONE
     Indication: Blau syndrome

REACTIONS (2)
  - Encephalitis [Unknown]
  - Off label use [Unknown]
